FAERS Safety Report 24915149 (Version 1)
Quarter: 2025Q1

REPORT INFORMATION
  Report Type: Spontaneous
  Country: RU (occurrence: RU)
  Receive Date: 20250203
  Receipt Date: 20250203
  Transmission Date: 20250409
  Serious: Yes (Life-Threatening)
  Sender: JOHNSON AND JOHNSON
  Company Number: RU-JNJFOC-20250167970

PATIENT
  Age: 7 Decade
  Sex: Male
  Weight: 49 kg

DRUGS (16)
  1. SIRTURO [Suspect]
     Active Substance: BEDAQUILINE FUMARATE
     Indication: Tuberculosis
     Route: 048
     Dates: start: 20230807, end: 20230818
  2. SIRTURO [Suspect]
     Active Substance: BEDAQUILINE FUMARATE
     Route: 048
     Dates: start: 20230821, end: 20240125
  3. PRETOMANID [Suspect]
     Active Substance: PRETOMANID
     Indication: Tuberculosis
     Route: 048
     Dates: start: 20230807, end: 20230818
  4. PRETOMANID [Suspect]
     Active Substance: PRETOMANID
     Route: 048
     Dates: start: 20230821, end: 20240125
  5. LINEZOLID [Suspect]
     Active Substance: LINEZOLID
     Indication: Tuberculosis
     Route: 048
     Dates: start: 20230807, end: 20230818
  6. LINEZOLID [Suspect]
     Active Substance: LINEZOLID
     Route: 048
     Dates: end: 20240125
  7. LINEZOLID [Suspect]
     Active Substance: LINEZOLID
     Route: 048
     Dates: start: 20230821
  8. MOXIFLOXACIN [Suspect]
     Active Substance: MOXIFLOXACIN
     Indication: Tuberculosis
     Route: 048
     Dates: start: 20230807, end: 20230818
  9. MOXIFLOXACIN [Suspect]
     Active Substance: MOXIFLOXACIN
     Route: 048
     Dates: start: 20230821, end: 20240125
  10. IVABRADINE [Concomitant]
     Active Substance: IVABRADINE
     Indication: Myocardial ischaemia
     Dates: start: 20231018, end: 20240125
  11. ASPICARD [Concomitant]
     Indication: Myocardial ischaemia
     Dates: start: 20231002, end: 20240125
  12. ATORVASTATIN [Concomitant]
     Active Substance: ATORVASTATIN
     Indication: Myocardial ischaemia
     Dates: start: 20231002, end: 20240125
  13. FOLIC ACID [Concomitant]
     Active Substance: FOLIC ACID
     Indication: Anaemia
     Route: 048
     Dates: start: 20230926, end: 20240125
  14. COBAMAMIDE [Concomitant]
     Active Substance: COBAMAMIDE
     Indication: Anaemia
     Route: 030
     Dates: start: 20230926, end: 20231020
  15. FERROMED [FERROUS FUMARATE] [Concomitant]
     Indication: Anaemia
     Route: 048
     Dates: start: 20230926, end: 20231220
  16. OMEPRAZOLE [Concomitant]
     Active Substance: OMEPRAZOLE
     Indication: Prophylaxis
     Dosage: 20 MG IN THE MORNING ON AN EMPTY STOMACH
     Route: 048
     Dates: start: 20231002, end: 20240125

REACTIONS (1)
  - Electrocardiogram QT prolonged [Recovered/Resolved]

NARRATIVE: CASE EVENT DATE: 20230818
